FAERS Safety Report 4733524-8 (Version None)
Quarter: 2005Q3

REPORT INFORMATION
  Report Type: 
  Country: None (occurrence: None)
  Receive Date: 20050729
  Receipt Date: 20050607
  Transmission Date: 20060218
  Serious: No
  Sender: FDA-Public Use
  Company Number: COT_0093_2005

PATIENT
  Age: 77 Year
  Sex: Female
  Weight: 53.978 kg

DRUGS (11)
  1. VENTAVIS [Suspect]
     Indication: PULMONARY HYPERTENSION
     Dosage: DF IH
     Dates: start: 20050519, end: 20050607
  2. ENULOSE [Concomitant]
  3. COZAAR [Concomitant]
  4. MULTI-VITAMIN [Concomitant]
  5. VITAMIN B COMPLEX CAP [Concomitant]
  6. MANGANESE [Concomitant]
  7. ALDACTONE [Concomitant]
  8. PROTONIX [Concomitant]
  9. K-DUR 10 [Concomitant]
  10. GUAIFENESIN [Concomitant]
  11. CALCIUM ZINC MAGNESIUM VITAMIN [Concomitant]

REACTIONS (3)
  - COUGH [None]
  - DRY MOUTH [None]
  - ODYNOPHAGIA [None]
